FAERS Safety Report 5815169-1 (Version None)
Quarter: 2008Q3

REPORT INFORMATION
  Report Type: 
  Country: None (occurrence: None)
  Receive Date: 20080718
  Receipt Date: 20080707
  Transmission Date: 20090109
  Serious: Yes (Hospitalization, Disabling)
  Sender: FDA-Public Use
  Company Number: BE-ROCHE-572887

PATIENT
  Sex: Female
  Weight: 75 kg

DRUGS (3)
  1. PEGASYS [Suspect]
     Route: 058
     Dates: start: 20071228
  2. RIBAVIRIN [Suspect]
     Dosage: STRENGTH: 1000 MG, FREQUENCY: DAILY
     Route: 048
     Dates: start: 20071228, end: 20080130
  3. RIBAVIRIN [Suspect]
     Dosage: STRENGTH: 600 MG, FREQUENCY: DAILY
     Route: 048
     Dates: start: 20080131, end: 20080528

REACTIONS (2)
  - ERYTHEMA NODOSUM [None]
  - WRIST FRACTURE [None]
